FAERS Safety Report 8899011 (Version 1)
Quarter: 2012Q4

REPORT INFORMATION
  Report Type: 
  Country: US (occurrence: US)
  Receive Date: 20121108
  Receipt Date: 20121108
  Transmission Date: 20130627
  Serious: No
  Sender: FDA-Public Use
  Company Number: US-AMGEN-USASP2012034481

PATIENT
  Age: 41 Year
  Sex: Female

DRUGS (11)
  1. ENBREL [Suspect]
     Indication: RHEUMATOID ARTHRITIS
     Dosage: 50 mg, qwk
     Dates: start: 201203
  2. METHOTREXATE [Concomitant]
     Dosage: 1 mg, UNK
  3. HYDROXYCHLOROQUINE [Concomitant]
     Dosage: UNK mg, UNK
  4. TRAZODONE [Concomitant]
     Dosage: UNK mg, UNK
  5. LEXAPRO [Concomitant]
     Dosage: UNK mg, UNK
  6. FOLIC ACID [Concomitant]
     Dosage: UNK mg, UNK
  7. ATIVAN [Concomitant]
     Dosage: UNK mg, UNK
  8. MELOXICAM [Concomitant]
     Dosage: UNK mg, UNK
  9. MULTIVITAMINS, PLAIN [Concomitant]
     Dosage: UNK
  10. FIORICET [Concomitant]
     Dosage: 50/325/40
  11. HYDROCODONE/ACETAMINOPHEN          /00607101/ [Concomitant]
     Dosage: 7.5/500 mg

REACTIONS (2)
  - Headache [Unknown]
  - Pyrexia [Unknown]
